FAERS Safety Report 6441572-5 (Version None)
Quarter: 2009Q4

REPORT INFORMATION
  Report Type: 
  Country: None (occurrence: None)
  Receive Date: 20091116
  Receipt Date: 20091109
  Transmission Date: 20100525
  Serious: Yes (Hospitalization)
  Sender: FDA-Public Use
  Company Number: AU-ASTRAZENECA-2009SE24799

PATIENT
  Age: 60 Year
  Sex: Male

DRUGS (4)
  1. CRESTOR [Suspect]
     Dosage: 10 TABLETS OF 5 MG
     Route: 048
  2. LIPIDIL [Suspect]
     Dosage: 24 TABLETS OF 145 MG
     Route: 048
  3. IBUPROFEN [Suspect]
     Dosage: 5 TABLETS OF 200 MG
  4. PARACETAMOL [Suspect]
     Dosage: 12 TABLETS OF 500 MG
     Route: 048

REACTIONS (1)
  - INTENTIONAL OVERDOSE [None]
